FAERS Safety Report 9466050 (Version 1)
Quarter: 2013Q3

REPORT INFORMATION
  Report Type: Spontaneous
  Country: US (occurrence: US)
  Receive Date: 20130820
  Receipt Date: 20130820
  Transmission Date: 20140515
  Serious: Yes (Other)
  Sender: FDA-Public Use
  Company Number: US-AMGEN-USASP2013057305

PATIENT
  Age: 57 Year
  Sex: Female
  Weight: 51.25 kg

DRUGS (20)
  1. ENBREL [Suspect]
     Indication: PRODUCT USED FOR UNKNOWN INDICATION
     Dosage: 50 MG, QWK
     Route: 058
     Dates: start: 201109, end: 201212
  2. FOSAMAX [Concomitant]
     Dosage: 5 MG, UNK
  3. CELEBREX [Concomitant]
     Dosage: 50 MG, UNK
  4. AMLODIPIN                          /00972401/ [Concomitant]
     Dosage: 2.5 MG, UNK
  5. METHOTREXATE [Concomitant]
     Dosage: 2.5 MG, UNK
  6. PREDNISONE [Concomitant]
     Dosage: 1 MG, UNK
  7. VICODIN ES [Concomitant]
     Dosage: 7.5-750
  8. PRAVASTATIN [Concomitant]
     Dosage: 10 MG, UNK
  9. ZONISAMIDE [Concomitant]
     Dosage: 25 MG, UNK
  10. LAMICTAL [Concomitant]
     Dosage: 25 MG, UNK
  11. TOPROL [Concomitant]
     Dosage: 25 MG, UNK,XL
  12. ESTRACE [Concomitant]
     Dosage: 0.5 MG, UNK
  13. PLAVIX [Concomitant]
     Dosage: 75 MG, UNK
  14. NAMENDA [Concomitant]
     Dosage: 7 MG, UNK,XR
  15. VITAMIN D                          /00107901/ [Concomitant]
     Dosage: 1000 UNIT, UNK
  16. VITAMIN B2                         /00154901/ [Concomitant]
     Dosage: 100 MG, UNK
  17. MULTIVITAMINS, PLAIN [Concomitant]
     Dosage: UNK
  18. CALCIUM +D                         /00944201/ [Concomitant]
  19. FERROUS GLUCEPTATE [Concomitant]
     Dosage: 28 MG, UNK
  20. VAYACOG [Concomitant]
     Dosage: UNK

REACTIONS (2)
  - Convulsion [Unknown]
  - Therapeutic response decreased [Unknown]
